FAERS Safety Report 19434277 (Version 1)
Quarter: 2021Q2

REPORT INFORMATION
  Report Type: Spontaneous
  Country: US (occurrence: US)
  Receive Date: 20210617
  Receipt Date: 20210617
  Transmission Date: 20210717
  Serious: No
  Sender: FDA-Public Use
  Company Number: US-ROCHE-2594241

PATIENT
  Sex: Female

DRUGS (9)
  1. CELECOXIB. [Concomitant]
     Active Substance: CELECOXIB
  2. OMEPRAZOLE. [Concomitant]
     Active Substance: OMEPRAZOLE
  3. LISINOPRIL. [Concomitant]
     Active Substance: LISINOPRIL
  4. LORAZEPAM. [Concomitant]
     Active Substance: LORAZEPAM
  5. HYDROCODONE [Concomitant]
     Active Substance: HYDROCODONE
     Dosage: 10?325 MG
  6. CELEBREX [Concomitant]
     Active Substance: CELECOXIB
  7. PREDNISOLONE. [Concomitant]
     Active Substance: PREDNISOLONE
  8. ACTEMRA [Suspect]
     Active Substance: TOCILIZUMAB
     Indication: RHEUMATOID ARTHRITIS
     Route: 058
  9. METHOTREXATE. [Concomitant]
     Active Substance: METHOTREXATE

REACTIONS (2)
  - Drug ineffective [Unknown]
  - Feeling hot [Unknown]
